FAERS Safety Report 8294775-1 (Version None)
Quarter: 2012Q2

REPORT INFORMATION
  Report Type: 
  Country: None (occurrence: None)
  Receive Date: 20120418
  Receipt Date: 20120411
  Transmission Date: 20120825
  Serious: Yes (Other)
  Sender: FDA-Public Use
  Company Number: JP-PFIZER INC-2012066660

PATIENT
  Age: 73 Year
  Sex: Female

DRUGS (5)
  1. ETHAMBUTOL HYDROCHLORIDE [Concomitant]
     Dosage: 500 MG/DAY
     Dates: start: 20110730
  2. LEVOFLOXACIN [Concomitant]
     Dosage: 500 MG/DAY
     Dates: start: 20110730
  3. MYCOBUTIN [Suspect]
     Dosage: 100 MG/DAY
     Dates: start: 20120407
  4. MYCOBUTIN [Suspect]
     Indication: LYMPH NODE TUBERCULOSIS
     Dosage: 150 MG/DAY
     Dates: start: 20120316, end: 20120406
  5. PYRAZINAMIDE [Concomitant]
     Dosage: 1.2 G/DAY
     Dates: start: 20110730

REACTIONS (1)
  - BONE MARROW FAILURE [None]
